FAERS Safety Report 21498914 (Version 1)
Quarter: 2022Q4

REPORT INFORMATION
  Report Type: Spontaneous
  Country: US (occurrence: None)
  Receive Date: 20221021
  Receipt Date: 20221021
  Transmission Date: 20230113
  Serious: Yes (Other)
  Sender: FDA-Public Use
  Company Number: None

PATIENT
  Sex: Female

DRUGS (1)
  1. JELMYTO [Suspect]
     Active Substance: MITOMYCIN

REACTIONS (1)
  - Rash [None]

NARRATIVE: CASE EVENT DATE: 20221020
